FAERS Safety Report 8364770-2 (Version None)
Quarter: 2012Q2

REPORT INFORMATION
  Report Type: 
  Country: None (occurrence: None)
  Receive Date: 20120516
  Receipt Date: 20120508
  Transmission Date: 20120825
  Serious: Yes (Other)
  Sender: FDA-Public Use
  Company Number: US-ROCHE-1044464

PATIENT
  Sex: Female

DRUGS (9)
  1. TRAZODONE HCL [Concomitant]
     Route: 048
  2. CYPROHEPTADINE HCL [Concomitant]
     Route: 048
  3. TRICOR [Concomitant]
     Dosage: FOR 90 DAYS
     Route: 048
  4. BONIVA [Suspect]
     Indication: PRODUCT USED FOR UNKNOWN INDICATION
     Dosage: FOR 90 DAYS
     Route: 048
  5. XANAX [Concomitant]
     Route: 048
  6. PREMARIN [Concomitant]
     Dosage: FOR 90 DAYS
     Route: 048
  7. LORTAB [Concomitant]
     Indication: PAIN
     Dosage: 7.5-500MG EVERY 4-6 HOURS
     Route: 048
  8. PAXIL [Concomitant]
     Route: 048
  9. PROTONIX [Concomitant]
     Route: 048

REACTIONS (1)
  - INJURY [None]
